FAERS Safety Report 8736036 (Version 2)
Quarter: 2012Q4

REPORT INFORMATION
  Report Type: Spontaneous
  Country: GB (occurrence: None)
  Receive Date: 20120803
  Receipt Date: 20120925
  Transmission Date: 20130627
  Serious: Yes (Other)
  Sender: FDA-Public Use
  Company Number: GER/UKI/12/0025247

PATIENT
  Age: 73 Year
  Sex: Male

DRUGS (13)
  1. CLOPIDOGREL [Suspect]
     Indication: PRODUCT USED FOR UNKNOWN INDICATION
     Dates: start: 20110830, end: 20120703
  2. ASPIRIN (ACETYLSALICYLIC ACID) [Concomitant]
  3. ADALAT (NIFEDIPINE) [Concomitant]
  4. ALENDRONIC ACID (ALENDRONIC ACID) [Concomitant]
  5. CALCICHEW D3 (LEKOVIT CA) [Concomitant]
  6. DIGOXIN (DIGOXIN) [Concomitant]
  7. IBUPROFEN (IBUPROFEN) [Concomitant]
  8. FUROSEMIDE (FUROSEMIDE) [Concomitant]
  9. MORPHINE (MORPHINE) (UNKNOWN) (MORPHINE) [Concomitant]
  10. OMEPRAZOLE (OMEPRAZOLE) [Concomitant]
  11. PREDNISOLONE (PREDNISOLONE) [Concomitant]
  12. PREGABALIN (PREGABALIN) [Concomitant]
  13. SIMVASTATIN (SIMVASTATIN) [Concomitant]

REACTIONS (7)
  - Throat cancer [None]
  - Blood cholesterol abnormal [None]
  - Hypertension [None]
  - Oedema [None]
  - Pain [None]
  - Dysphagia [None]
  - Dysphagia [None]
